FAERS Safety Report 7319641-7 (Version None)
Quarter: 2011Q1

REPORT INFORMATION
  Report Type: 
  Country: None (occurrence: None)
  Receive Date: 20110228
  Receipt Date: 20100625
  Transmission Date: 20110831
  Serious: No
  Sender: FDA-Public Use
  Company Number: A0867227A

PATIENT
  Age: 49 Year
  Sex: Female

DRUGS (4)
  1. PAXIL [Concomitant]
  2. LAMICTAL [Suspect]
     Indication: BIPOLAR DISORDER
     Dosage: 25MG PER DAY
     Route: 048
     Dates: start: 20100610, end: 20100624
  3. METFORMIN [Concomitant]
  4. PREDNISONE [Concomitant]

REACTIONS (1)
  - RASH [None]
